FAERS Safety Report 7229855-2 (Version None)
Quarter: 2011Q1

REPORT INFORMATION
  Report Type: 
  Country: None (occurrence: None)
  Receive Date: 20110117
  Receipt Date: 20110105
  Transmission Date: 20110831
  Serious: Yes (Other)
  Sender: FDA-Public Use
  Company Number: PHHY2011GB01252

PATIENT
  Sex: Female

DRUGS (1)
  1. CO-CODAMOL [Suspect]
     Dosage: UNK
     Route: 048

REACTIONS (4)
  - SWELLING FACE [None]
  - SKIN REACTION [None]
  - EYE SWELLING [None]
  - PRURITUS [None]
